FAERS Safety Report 8377727-2 (Version None)
Quarter: 2012Q2

REPORT INFORMATION
  Report Type: 
  Country: None (occurrence: None)
  Receive Date: 20120522
  Receipt Date: 20120511
  Transmission Date: 20120825
  Serious: Yes (Hospitalization)
  Sender: FDA-Public Use
  Company Number: FR-VIIV HEALTHCARE LIMITED-B0800680A

PATIENT
  Sex: Male

DRUGS (4)
  1. TIPRANAVIR [Suspect]
     Indication: HIV INFECTION CDC CATEGORY A3
     Route: 048
     Dates: start: 20090116, end: 20120109
  2. COMBIVIR [Suspect]
     Indication: HIV INFECTION CDC CATEGORY A3
     Route: 048
     Dates: start: 20110923, end: 20120102
  3. NORVIR [Concomitant]
     Indication: HIV INFECTION CDC CATEGORY A3
     Dosage: 1UNIT TWICE PER DAY
     Route: 048
     Dates: start: 19970101
  4. INTELENCE [Concomitant]
     Indication: HIV INFECTION CDC CATEGORY A3
     Dosage: 1UNIT SIX TIMES PER DAY
     Route: 048
     Dates: start: 20090116

REACTIONS (3)
  - ANAEMIA [None]
  - PALLOR [None]
  - DYSPNOEA EXERTIONAL [None]
